FAERS Safety Report 6900034-9 (Version None)
Quarter: 2010Q3

REPORT INFORMATION
  Report Type: 
  Country: None (occurrence: None)
  Receive Date: 20100803
  Receipt Date: 20100730
  Transmission Date: 20110219
  Serious: Yes (Death, Life-Threatening, Hospitalization, Disabling, Other)
  Sender: FDA-Public Use
  Company Number: AT-BAYER-201034422GPV

PATIENT
  Age: 66 Year
  Sex: Female
  Weight: 57 kg

DRUGS (6)
  1. ASPIRIN [Suspect]
     Indication: PREMEDICATION
  2. ANGIOMAX [Suspect]
     Indication: PRODUCT USED FOR UNKNOWN INDICATION
     Dosage: 0.70 MG/KG/H
     Route: 040
     Dates: start: 20060510, end: 20060510
  3. ANGIOMAX [Suspect]
     Dosage: 1.67 MG/KG/H
     Route: 041
     Dates: start: 20060510, end: 20060510
  4. CLOPIDOGREL [Suspect]
     Indication: PREMEDICATION
  5. HEPARIN [Suspect]
     Dosage: AS USED: 15000/18000 U
     Dates: start: 20060510, end: 20060510
  6. HEPARIN [Suspect]

REACTIONS (4)
  - CARDIAC FAILURE CONGESTIVE [None]
  - CEREBRAL HAEMORRHAGE [None]
  - INCISION SITE HAEMORRHAGE [None]
  - SICK SINUS SYNDROME [None]
